FAERS Safety Report 5819056-4 (Version None)
Quarter: 2008Q3

REPORT INFORMATION
  Report Type: 
  Country: None (occurrence: None)
  Receive Date: 20080723
  Receipt Date: 20080715
  Transmission Date: 20090109
  Serious: No
  Sender: FDA-Public Use
  Company Number: US-BAYER-200827955NA

PATIENT
  Age: 26 Year
  Sex: Female
  Weight: 107 kg

DRUGS (3)
  1. YAZ [Suspect]
     Indication: CONTRACEPTION
     Route: 048
     Dates: start: 20080401
  2. LITHIUM [Concomitant]
     Indication: BIPOLAR DISORDER
  3. ^3 OTHER NERVE PILLS^ [Concomitant]
     Indication: DRUG USE FOR UNKNOWN INDICATION
     Route: 048

REACTIONS (2)
  - BONE PAIN [None]
  - VAGINAL HAEMORRHAGE [None]
